FAERS Safety Report 25878182 (Version 1)
Quarter: 2025Q4

REPORT INFORMATION
  Report Type: Spontaneous
  Country: ID (occurrence: ID)
  Receive Date: 20251003
  Receipt Date: 20251003
  Transmission Date: 20260117
  Serious: Yes (Death, Other)
  Sender: RANBAXY
  Company Number: ID-SUN PHARMACEUTICAL INDUSTRIES LTD-2025RR-529203

PATIENT
  Age: 29 Year
  Sex: Male

DRUGS (2)
  1. TEMOZOLOMIDE [Suspect]
     Active Substance: TEMOZOLOMIDE
     Indication: Glioblastoma multiforme
     Dosage: 6  CYCLES, 75 MILLIGRAM/SQ. METER, DAILY
     Route: 048
  2. TEMOZOLOMIDE [Suspect]
     Active Substance: TEMOZOLOMIDE
     Dosage: 150-200 MILLIGRAM/SQ. METER, DAILY, FOR 5  DAYS EVERY 28  DAYS, 6 CYCLES
     Route: 048

REACTIONS (1)
  - Disease progression [Fatal]
